FAERS Safety Report 8337514-8 (Version None)
Quarter: 2012Q2

REPORT INFORMATION
  Report Type: 
  Country: None (occurrence: None)
  Receive Date: 20120504
  Receipt Date: 19860728
  Transmission Date: 20120825
  Serious: Yes (Hospitalization, Other)
  Sender: FDA-Public Use
  Company Number: FR-ROCHE-6589

PATIENT
  Sex: Male

DRUGS (8)
  1. ADALAT [Concomitant]
     Route: 048
     Dates: start: 19860201, end: 19860215
  2. DIPYRIDAMOLE [Concomitant]
     Route: 048
     Dates: start: 19860210, end: 19860214
  3. IDARAC [Concomitant]
     Route: 048
     Dates: start: 19860210, end: 19860214
  4. SINTROM [Concomitant]
     Route: 048
     Dates: start: 19850801, end: 19860108
  5. LORAZEPAM [Concomitant]
     Route: 048
     Dates: start: 19860211, end: 19860213
  6. TICLID [Suspect]
     Indication: EMBOLISM
     Route: 048
     Dates: start: 19860108, end: 19860301
  7. CALCIPARINE [Concomitant]
     Route: 048
     Dates: start: 19850801, end: 19860801
  8. ATARAX [Concomitant]
     Route: 048
     Dates: start: 19860201, end: 19860215

REACTIONS (5)
  - PYREXIA [None]
  - BONE MARROW FAILURE [None]
  - ANGINA PECTORIS [None]
  - AGRANULOCYTOSIS [None]
  - CYTOLYTIC HEPATITIS [None]
